FAERS Safety Report 6466371-X (Version None)
Quarter: 2009Q4

REPORT INFORMATION
  Report Type: 
  Country: None (occurrence: None)
  Receive Date: 20091127
  Receipt Date: 20091118
  Transmission Date: 20100525
  Serious: Yes (Hospitalization)
  Sender: FDA-Public Use
  Company Number: 2009029162

PATIENT
  Age: 61 Year
  Sex: Male
  Weight: 86 kg

DRUGS (3)
  1. TRISENOX [Suspect]
     Indication: ACUTE MYELOID LEUKAEMIA
     Dosage: 0.3 MG/KG, DAYS 1-5 QW, INTRAVENOUS DRIP
     Route: 041
     Dates: start: 20091109
  2. DECITABINE (DECITABINE) [Suspect]
     Indication: ACUTE MYELOID LEUKAEMIA
     Dosage: 20 MG/M2, DAYS 1-5
     Dates: start: 20091109, end: 20091113
  3. ASCORBIC ACID [Suspect]
     Indication: ACUTE MYELOID LEUKAEMIA
     Dosage: 1000 MG, DAYS 1-5
     Dates: start: 20091109

REACTIONS (5)
  - BACTERAEMIA [None]
  - CELLULITIS [None]
  - DEVICE RELATED INFECTION [None]
  - HYPOTENSION [None]
  - NEUTROPENIC SEPSIS [None]
